APPROVED DRUG PRODUCT: CHLORPROMAZINE HYDROCHLORIDE
Active Ingredient: CHLORPROMAZINE HYDROCHLORIDE
Strength: 200MG
Dosage Form/Route: TABLET;ORAL
Application: A212996 | Product #005 | TE Code: AB
Applicant: LANNETT CO INC
Approved: Jan 22, 2021 | RLD: No | RS: No | Type: RX